FAERS Safety Report 20728953 (Version 3)
Quarter: 2022Q3

REPORT INFORMATION
  Report Type: Report from Study
  Country: US (occurrence: None)
  Receive Date: 20220420
  Receipt Date: 20220725
  Transmission Date: 20221027
  Serious: Yes (Hospitalization)
  Sender: FDA-Public Use
  Company Number: US-Merck Healthcare KGaA-9313753

PATIENT
  Age: 60 Year
  Sex: Male

DRUGS (3)
  1. REBIF [Suspect]
     Active Substance: INTERFERON BETA-1A
     Indication: Multiple sclerosis
     Route: 058
     Dates: start: 20211228
  2. REBIF [Suspect]
     Active Substance: INTERFERON BETA-1A
     Route: 058
     Dates: start: 2022, end: 2022
  3. REBIF [Suspect]
     Active Substance: INTERFERON BETA-1A
     Dosage: PREVIOUSLY: REBIDOSE?REBIF PREFILLED SYRINGE
     Route: 058
     Dates: start: 2022

REACTIONS (6)
  - Gastrointestinal haemorrhage [Unknown]
  - Blood loss anaemia [Unknown]
  - Dehydration [Unknown]
  - Renal impairment [Unknown]
  - Constipation [Unknown]
  - Decreased appetite [Unknown]

NARRATIVE: CASE EVENT DATE: 20220401
